FAERS Safety Report 23180224 (Version 1)
Quarter: 2023Q4

REPORT INFORMATION
  Report Type: Spontaneous
  Country: US (occurrence: US)
  Receive Date: 20231114
  Receipt Date: 20231114
  Transmission Date: 20240110
  Serious: No
  Sender: FDA-Public Use
  Company Number: US-BoehringerIngelheim-2023-BI-272595

PATIENT
  Age: 88 Year
  Sex: Female

DRUGS (2)
  1. SPIRIVA HANDIHALER [Suspect]
     Active Substance: TIOTROPIUM BROMIDE MONOHYDRATE
     Indication: Dyspnoea
     Dosage: 1 CAPSULE DAILY
     Dates: start: 2003
  2. SPIRIVA RESPIMAT [Suspect]
     Active Substance: TIOTROPIUM BROMIDE
     Indication: Dyspnoea
     Dosage: 1 SPRAY A DAY
     Dates: start: 20231113

REACTIONS (2)
  - Dizziness [Not Recovered/Not Resolved]
  - Off label use [Unknown]

NARRATIVE: CASE EVENT DATE: 20231113
